FAERS Safety Report 7764433-8 (Version None)
Quarter: 2011Q3

REPORT INFORMATION
  Report Type: 
  Country: None (occurrence: None)
  Receive Date: 20110921
  Receipt Date: 20100726
  Transmission Date: 20111222
  Serious: No
  Sender: FDA-Public Use
  Company Number: US-BAYER-201031384NA

PATIENT
  Sex: Female

DRUGS (1)
  1. MIRENA [Suspect]
     Dosage: 20 MCG/24HR, CONT
     Route: 015

REACTIONS (5)
  - ACNE [None]
  - MENORRHAGIA [None]
  - DYSMENORRHOEA [None]
  - PREMENSTRUAL SYNDROME [None]
  - MOOD ALTERED [None]
